FAERS Safety Report 8382187-1 (Version None)
Quarter: 2012Q2

REPORT INFORMATION
  Report Type: 
  Country: None (occurrence: None)
  Receive Date: 20120511
  Receipt Date: 20120507
  Transmission Date: 20120825
  Serious: Yes (Other)
  Sender: FDA-Public Use
  Company Number: 2011027942

PATIENT
  Age: 44 Year
  Sex: Female
  Weight: 54.4316 kg

DRUGS (25)
  1. SLOW-MAG (MAGNESIUM CHLORIDE ANHYDROUS) [Concomitant]
  2. SULFAZINE (SULFASALAZINE) [Concomitant]
  3. CYCLOBENZAPRINE [Concomitant]
  4. CLARITHROMYCIN [Concomitant]
  5. FIORINAL (FIORINAL /0090401/) [Concomitant]
  6. DIPHENHYDRAMINE HCL [Concomitant]
  7. ELETRIPTAN HYDROBROMIDE [Concomitant]
  8. VITAMIN B1 TAB [Concomitant]
  9. MULTIVITAMIN (DAILY MULTIVITAMIN) [Concomitant]
  10. PREDNISONE TAB [Concomitant]
  11. AMBEIN (ZOLPIDEM TARTRATE0 [Concomitant]
  12. FLEXERIL [Concomitant]
  13. TRAMADOL HCL [Concomitant]
  14. AMOXICILLIN [Concomitant]
  15. HIZENTRA [Suspect]
  16. MELATONIN (MELATONIN) [Concomitant]
  17. LIDOCAINE [Concomitant]
  18. LIDOCAINE/PRILOCAINE (EMLA /00675501/) [Concomitant]
  19. HIZENTRA [Suspect]
     Indication: IMMUNODEFICIENCY COMMON VARIABLE
     Dosage: 8 G 1X/WEEK, 8 G (40 ML) WEEKLY VIA 3-4 SITES OVER 1  HR SUBCUTANEOUS
     Route: 058
     Dates: start: 20120502
  20. HIZENTRA [Suspect]
     Indication: IMMUNODEFICIENCY COMMON VARIABLE
     Dosage: 8 G 1X/WEEK, 8 G (40 ML) WEEKLY VIA 3-4 SITES OVER 1  HR SUBCUTANEOUS
     Route: 058
     Dates: start: 20110312
  21. HIZENTRA [Suspect]
  22. ELAVIL [Concomitant]
  23. LEVOFLOXACIN [Concomitant]
  24. MOTRIN [Concomitant]
  25. AZITHROMYCIN [Concomitant]

REACTIONS (4)
  - FATIGUE [None]
  - NAUSEA [None]
  - HEADACHE [None]
  - INFUSION SITE ERYTHEMA [None]
